FAERS Safety Report 17110887 (Version 5)
Quarter: 2020Q4

REPORT INFORMATION
  Report Type: Report from Study
  Country: EG (occurrence: EG)
  Receive Date: 20191204
  Receipt Date: 20201003
  Transmission Date: 20210113
  Serious: Yes (Other)
  Sender: FDA-Public Use
  Company Number: NVSC2019EG052051

PATIENT
  Age: 12 Year
  Sex: Female
  Weight: 36 kg

DRUGS (7)
  1. MULTI VITAMIN [Concomitant]
     Active Substance: VITAMINS
     Indication: PRODUCT USED FOR UNKNOWN INDICATION
     Dosage: 1 DF, QD
     Route: 065
     Dates: start: 2019
  2. OMNITROPE [Suspect]
     Active Substance: SOMATROPIN
     Dosage: 1.4 MG
     Route: 058
     Dates: start: 201910
  3. OMNITROPE [Suspect]
     Active Substance: SOMATROPIN
     Dosage: UNK
     Route: 058
     Dates: start: 20191129
  4. OMNITROPE [Suspect]
     Active Substance: SOMATROPIN
     Dosage: 1.4 MG, QD
     Route: 065
     Dates: start: 202005
  5. VITAMIN D [Concomitant]
     Active Substance: VITAMIN D NOS
     Indication: PRODUCT USED FOR UNKNOWN INDICATION
     Dosage: 1 DF, QW
     Route: 065
     Dates: start: 2019
  6. OMNITROPE [Suspect]
     Active Substance: SOMATROPIN
     Indication: GROWTH HORMONE DEFICIENCY
     Dosage: 1.2 MG, QD
     Route: 065
     Dates: start: 201907
  7. OMNITROPE [Suspect]
     Active Substance: SOMATROPIN
     Dosage: 1 MG
     Route: 058
     Dates: start: 20190729

REACTIONS (9)
  - Injection site mass [Not Recovered/Not Resolved]
  - Device use issue [Recovered/Resolved]
  - Injection site pain [Not Recovered/Not Resolved]
  - Injection site pain [Recovered/Resolved]
  - Drug ineffective [Not Recovered/Not Resolved]
  - Injection site haemorrhage [Recovered/Resolved]
  - Weight increased [Not Recovered/Not Resolved]
  - Injection site haemorrhage [Not Recovered/Not Resolved]
  - Device issue [Not Recovered/Not Resolved]

NARRATIVE: CASE EVENT DATE: 20190801
